FAERS Safety Report 25488240 (Version 1)
Quarter: 2025Q2

REPORT INFORMATION
  Report Type: Report from Study
  Country: US (occurrence: US)
  Receive Date: 20250627
  Receipt Date: 20250627
  Transmission Date: 20250717
  Serious: No
  Sender: LUNDBECK
  Company Number: US-LUNDBECK-DKLU4015941

PATIENT
  Age: 34 Year
  Sex: Female

DRUGS (1)
  1. VYEPTI [Suspect]
     Active Substance: EPTINEZUMAB-JJMR
     Indication: Product used for unknown indication
     Route: 041

REACTIONS (8)
  - Face oedema [Unknown]
  - Oedema peripheral [Unknown]
  - Abdominal distension [Unknown]
  - Localised oedema [Unknown]
  - Palpitations [Unknown]
  - Conjunctivitis [Recovered/Resolved]
  - Photophobia [Unknown]
  - Fluid retention [Unknown]
